FAERS Safety Report 4814196-0 (Version None)
Quarter: 2005Q4

REPORT INFORMATION
  Report Type: 
  Country: None (occurrence: None)
  Receive Date: 20051028
  Receipt Date: 20050718
  Transmission Date: 20060501
  Serious: No
  Sender: FDA-Public Use
  Company Number: US-GLAXOSMITHKLINE-A0566676A

PATIENT
  Sex: Female

DRUGS (8)
  1. ADVAIR DISKUS 100/50 [Suspect]
     Indication: ASTHMA
     Dosage: 1PUFF TWICE PER DAY
     Route: 055
     Dates: start: 20050301
  2. SULFA-NAME UNKNOWN [Concomitant]
  3. ACCUPRIL [Concomitant]
  4. SYNTHROID [Concomitant]
  5. NORPACE [Concomitant]
  6. ZOCOR [Concomitant]
  7. PREMARIN [Concomitant]
  8. ASPIRIN [Concomitant]

REACTIONS (2)
  - VAGINAL DISCHARGE [None]
  - VULVOVAGINAL MYCOTIC INFECTION [None]
